FAERS Safety Report 4333945-1 (Version None)
Quarter: 2004Q2

REPORT INFORMATION
  Report Type: 
  Country: None (occurrence: None)
  Receive Date: 20040406
  Receipt Date: 20040406
  Transmission Date: 20050107
  Serious: Yes (Hospitalization)
  Sender: FDA-Public Use
  Company Number: None

PATIENT
  Age: 17 Year
  Sex: Male
  Weight: 69 kg

DRUGS (18)
  1. METHOTREXATE [Suspect]
     Indication: BONE SARCOMA
     Dosage: 20 GM X 1 IV
     Route: 042
     Dates: start: 20040224, end: 20030224
  2. NAHCO3 [Concomitant]
  3. KYTRIL [Concomitant]
  4. BENADRYL [Concomitant]
  5. PHENERGAN [Concomitant]
  6. DECADRON [Concomitant]
  7. ATIVAN [Concomitant]
  8. ZANTAC [Concomitant]
  9. CAL. CARB [Concomitant]
  10. FER GLUC [Concomitant]
  11. COLACE [Concomitant]
  12. LACTOBACILLUS [Concomitant]
  13. ZYRTEC [Concomitant]
  14. DIFLUCAN [Concomitant]
  15. EPOGEN [Concomitant]
  16. LEUCOVORIN CALCIUM [Concomitant]
  17. PENTAMIDINE [Concomitant]
  18. METHOTREXATE [Suspect]

REACTIONS (2)
  - CAUSTIC INJURY [None]
  - DRUG CLEARANCE DECREASED [None]
